FAERS Safety Report 5198030-8 (Version None)
Quarter: 2007Q1

REPORT INFORMATION
  Report Type: 
  Country: None (occurrence: None)
  Receive Date: 20070104
  Receipt Date: 20061225
  Transmission Date: 20070707
  Serious: Yes (Death)
  Sender: FDA-Public Use
  Company Number: JP-JNJFOC-20051203784

PATIENT
  Sex: Male

DRUGS (8)
  1. RISPERDAL [Suspect]
     Indication: SCHIZOPHRENIA
     Route: 048
  2. LODOPIN [Suspect]
     Indication: SCHIZOPHRENIA
     Route: 048
  3. HIRNAMIN [Suspect]
     Indication: SCHIZOPHRENIA
  4. DEPAKENE [Concomitant]
     Indication: SCHIZOPHRENIA
     Route: 048
  5. ARTANE [Concomitant]
     Route: 048
  6. SEPAZON [Concomitant]
     Route: 048
  7. DEPAS [Concomitant]
     Route: 048
  8. LIPITOR [Concomitant]
     Indication: HYPERLIPIDAEMIA
     Route: 048

REACTIONS (3)
  - DIABETIC KETOACIDOSIS [None]
  - OBESITY [None]
  - SEPSIS [None]
